FAERS Safety Report 23908946 (Version 1)
Quarter: 2024Q2

REPORT INFORMATION
  Report Type: Spontaneous
  Country: BR (occurrence: BR)
  Receive Date: 20240528
  Receipt Date: 20240528
  Transmission Date: 20240715
  Serious: Yes (Other)
  Sender: FDA-Public Use
  Company Number: BR-002147023-NVSC2024BR110414

PATIENT
  Age: 48 Year
  Sex: Female

DRUGS (1)
  1. RIBOCICLIB [Suspect]
     Active Substance: RIBOCICLIB
     Indication: Product used for unknown indication
     Dosage: UNK
     Route: 065

REACTIONS (5)
  - Metastasis [Unknown]
  - B-cell lymphoma [Unknown]
  - Metastases to lung [Unknown]
  - Bone lesion [Unknown]
  - Mediastinum neoplasm [Unknown]
